FAERS Safety Report 6898207-7 (Version None)
Quarter: 2010Q3

REPORT INFORMATION
  Report Type: 
  Country: None (occurrence: None)
  Receive Date: 20100802
  Receipt Date: 20070915
  Transmission Date: 20110219
  Serious: No
  Sender: FDA-Public Use
  Company Number: US-PFIZER INC-2007077716

PATIENT
  Sex: Female
  Weight: 81.8 kg

DRUGS (3)
  1. LYRICA [Suspect]
     Indication: DIABETIC NEUROPATHY
     Dates: start: 20070101, end: 20070301
  2. NEURONTIN [Suspect]
  3. METHADONE HCL [Concomitant]

REACTIONS (3)
  - ALOPECIA [None]
  - BLOOD GLUCOSE INCREASED [None]
  - VISUAL ACUITY REDUCED [None]
